FAERS Safety Report 9147421 (Version 2)
Quarter: 2013Q1

REPORT INFORMATION
  Report Type: Spontaneous
  Country: FR (occurrence: FR)
  Receive Date: 20130307
  Receipt Date: 20130311
  Transmission Date: 20140127
  Serious: Yes (Hospitalization)
  Sender: FDA-Public Use
  Company Number: FR-GLAXOSMITHKLINE-B0872747A

PATIENT
  Sex: Male

DRUGS (10)
  1. RYTHMOL [Suspect]
     Indication: HYPERTENSION
     Dosage: 150MG TWICE PER DAY
     Route: 048
  2. EFFEXOR [Suspect]
     Indication: DEPRESSION
     Dosage: 75MG PER DAY
     Route: 048
     Dates: end: 20121205
  3. IXPRIM [Suspect]
     Indication: PAIN
     Route: 048
     Dates: end: 20121205
  4. EUPANTOL [Concomitant]
     Route: 048
  5. MOTILIUM [Concomitant]
     Dosage: 10MG PER DAY
     Route: 048
  6. TRINEURIN [Concomitant]
     Route: 048
  7. ACTONEL [Concomitant]
     Dosage: 35MG PER DAY
     Route: 048
  8. CALCIDOSE VITAMIN D [Concomitant]
     Route: 048
  9. LOXEN [Concomitant]
     Dosage: 100MG PER DAY
     Route: 048
  10. AMYCOR [Concomitant]

REACTIONS (2)
  - Altered state of consciousness [Recovered/Resolved]
  - Somnolence [Recovered/Resolved]
